FAERS Safety Report 17803316 (Version 1)
Quarter: 2020Q2

REPORT INFORMATION
  Report Type: Report from Study
  Country: ES (occurrence: ES)
  Receive Date: 20200519
  Receipt Date: 20200519
  Transmission Date: 20200714
  Serious: Yes (Hospitalization)
  Sender: FDA-Public Use
  Company Number: ES-TEVA-2020-ES-1236093

PATIENT
  Age: 87 Year
  Sex: Female

DRUGS (6)
  1. BUPRENORFINA (814A) [Interacting]
     Active Substance: BUPRENORPHINE
     Indication: OSTEOARTHRITIS
     Dosage: 10 MICRO GRAM
     Route: 062
     Dates: start: 201704, end: 20170521
  2. METAMIZOL (111A) [Concomitant]
     Active Substance: METAMIZOL SODIUM
     Indication: OSTEOARTHRITIS
     Dosage: 1.15 GM
     Route: 048
     Dates: start: 201007, end: 20170521
  3. PARACETAMOL (12A) [Concomitant]
     Active Substance: ACETAMINOPHEN
     Indication: OSTEOARTHRITIS
     Dosage: 3 GM
     Route: 048
  4. TRAMADOL HIDROCLORURO (2389CH) [Interacting]
     Active Substance: TRAMADOL
     Dosage: 100 MG
     Route: 048
     Dates: start: 201608
  5. TROMALYT [Interacting]
     Active Substance: ASPIRIN
     Indication: ISCHAEMIC CARDIOMYOPATHY
     Dosage: 300 MG
     Route: 048
     Dates: end: 20170521
  6. NAPROXENO (2002A) [Suspect]
     Active Substance: NAPROXEN
     Indication: OSTEOARTHRITIS
     Dosage: 1.1 GM
     Route: 048
     Dates: start: 20170424, end: 20170521

REACTIONS (2)
  - Drug interaction [Unknown]
  - Lower gastrointestinal haemorrhage [Recovered/Resolved]

NARRATIVE: CASE EVENT DATE: 20170520
